FAERS Safety Report 15046057 (Version 1)
Quarter: 2018Q2

REPORT INFORMATION
  Report Type: Spontaneous
  Country: US (occurrence: US)
  Receive Date: 20180621
  Receipt Date: 20180621
  Transmission Date: 20180711
  Serious: Yes (Hospitalization)
  Sender: FDA-Public Use
  Company Number: US-ALLERGAN-1831728US

PATIENT
  Sex: Male

DRUGS (2)
  1. RAPAFLO [Suspect]
     Active Substance: SILODOSIN
     Indication: RENAL ARTERY STENT PLACEMENT
  2. RAPAFLO [Suspect]
     Active Substance: SILODOSIN
     Indication: NEPHROLITHIASIS
     Dosage: 4 MG, QD
     Route: 065
     Dates: start: 20180616, end: 20180617

REACTIONS (2)
  - Off label use [Unknown]
  - Anaphylactic shock [Recovering/Resolving]

NARRATIVE: CASE EVENT DATE: 20180617
